FAERS Safety Report 13910116 (Version 1)
Quarter: 2017Q3

REPORT INFORMATION
  Report Type: Report from Study
  Country: None (occurrence: US)
  Receive Date: 20170828
  Receipt Date: 20170828
  Transmission Date: 20171127
  Serious: Yes (Other)
  Sender: FDA-Public Use
  Company Number: US-ABBVIE-17K-163-1998045-00

PATIENT
  Age: 49 Year
  Sex: Male
  Weight: 99.88 kg

DRUGS (2)
  1. ZYRTEC [Concomitant]
     Active Substance: CETIRIZINE HYDROCHLORIDE
     Indication: HYPERSENSITIVITY
  2. HUMIRA [Suspect]
     Active Substance: ADALIMUMAB
     Indication: RHEUMATOID ARTHRITIS
     Route: 058

REACTIONS (8)
  - Renal colic [Recovering/Resolving]
  - Fatigue [Unknown]
  - Gout [Unknown]
  - Gastric ulcer [Recovering/Resolving]
  - Rheumatoid arthritis [Unknown]
  - Gout [Recovered/Resolved]
  - Cholelithiasis [Not Recovered/Not Resolved]
  - Duodenal ulcer [Recovering/Resolving]

NARRATIVE: CASE EVENT DATE: 201605
